FAERS Safety Report 9627803 (Version 3)
Quarter: 2013Q4

REPORT INFORMATION
  Report Type: Report from Study
  Country: US (occurrence: US)
  Receive Date: 20131016
  Receipt Date: 20131218
  Transmission Date: 20140711
  Serious: Yes (Hospitalization)
  Sender: FDA-Public Use
  Company Number: US-ROCHE-1286215

PATIENT
  Age: 45 Year
  Sex: Female
  Weight: 57.5 kg

DRUGS (52)
  1. TRASTUZUMAB [Suspect]
     Indication: HER-2 POSITIVE BREAST CANCER
     Dosage: LOADING DOSE
     Route: 042
     Dates: start: 20130329, end: 20130329
  2. TRASTUZUMAB [Suspect]
     Dosage: MAINTENANCE DOSE?LAST DOSE PRIOR TO SAE: 03/OCT/2013
     Route: 042
  3. CARBOPLATIN [Suspect]
     Indication: BREAST CANCER
     Dosage: LAST DOSE ON 15/JUL/2013, EVERY 3 WEEKS X 6 TIMES
     Route: 042
     Dates: start: 20130329
  4. TAXOTERE [Suspect]
     Indication: BREAST CANCER
     Dosage: LAST DOSE ON 15/JUL/2013, DOSE WAS 121 MG, 75MG/M2
     Route: 042
     Dates: start: 20130329
  5. DECADRON [Concomitant]
     Route: 048
     Dates: start: 20130328, end: 20130716
  6. DECADRON [Concomitant]
     Route: 042
     Dates: start: 20130329, end: 20130715
  7. EMLA CREAM [Concomitant]
     Route: 061
     Dates: start: 20130328
  8. PRILOSEC [Concomitant]
     Route: 048
     Dates: start: 20130313
  9. NEULASTA [Concomitant]
     Route: 058
     Dates: start: 20130401, end: 20130717
  10. BENTYL [Concomitant]
     Route: 048
     Dates: start: 20130313
  11. BENTYL [Concomitant]
     Route: 048
     Dates: start: 20130807, end: 20130810
  12. COMPAZINE [Concomitant]
     Route: 048
     Dates: start: 20130313
  13. COMPAZINE [Concomitant]
     Route: 048
     Dates: start: 20130807, end: 20130807
  14. ZOFRAN [Concomitant]
     Route: 048
     Dates: start: 20130313
  15. ZOFRAN [Concomitant]
     Route: 042
     Dates: start: 20130329, end: 20130717
  16. ZOFRAN [Concomitant]
     Route: 048
     Dates: start: 20130807
  17. ZOFRAN [Concomitant]
     Route: 042
     Dates: start: 20130806, end: 20130806
  18. MAXALT-MLT [Concomitant]
     Route: 048
     Dates: start: 2005
  19. TYLENOL [Concomitant]
     Route: 048
     Dates: start: 20130329, end: 20130715
  20. TYLENOL [Concomitant]
     Route: 048
     Dates: start: 20130806
  21. TYLENOL [Concomitant]
     Route: 048
     Dates: start: 20130808, end: 20130808
  22. BENADRYL (UNITED STATES) [Concomitant]
     Route: 042
     Dates: start: 20130329, end: 20130715
  23. BENADRYL (UNITED STATES) [Concomitant]
     Route: 065
     Dates: start: 20130619, end: 20130718
  24. BENADRYL (UNITED STATES) [Concomitant]
     Route: 048
     Dates: start: 20130806, end: 20130806
  25. ALOXI [Concomitant]
     Route: 042
     Dates: start: 20130418, end: 20130715
  26. ATIVAN [Concomitant]
     Route: 042
     Dates: start: 20130418, end: 20130715
  27. SODIUM CHLORIDE [Concomitant]
     Route: 042
     Dates: start: 20130329, end: 20130717
  28. SODIUM CHLORIDE [Concomitant]
     Route: 065
     Dates: start: 20130806, end: 20130810
  29. EMEND [Concomitant]
     Route: 042
     Dates: start: 20130530, end: 20130715
  30. IMODIUM [Concomitant]
     Route: 048
     Dates: start: 20130417
  31. SANCUSO [Concomitant]
     Route: 061
     Dates: start: 20130510, end: 20130805
  32. POLYMYXIN B SULFATE/TRIMETHOPRIM [Concomitant]
     Route: 047
     Dates: start: 20130528, end: 20130801
  33. KEFLEX [Concomitant]
     Route: 048
     Dates: start: 20130619, end: 20130625
  34. CLINDAMYCIN [Concomitant]
     Route: 061
     Dates: start: 20130619, end: 20130718
  35. CORTISONE [Concomitant]
     Route: 061
     Dates: start: 20130528, end: 20130718
  36. HIBICLENS [Concomitant]
     Route: 061
     Dates: start: 20130619, end: 20130718
  37. ZYRTEC [Concomitant]
     Route: 065
     Dates: start: 20130619, end: 20130718
  38. MAXIPIME [Concomitant]
     Route: 042
     Dates: start: 20130807, end: 20130809
  39. MAXIPIME [Concomitant]
     Route: 042
     Dates: start: 20130806, end: 20130806
  40. NEUPOGEN [Concomitant]
     Route: 058
     Dates: start: 20130807, end: 20130807
  41. HYDRODIURIL [Concomitant]
     Route: 048
     Dates: start: 20130807, end: 20130808
  42. ISOVUE 370 [Concomitant]
     Route: 042
     Dates: start: 20130809, end: 20130809
  43. ATROVENT [Concomitant]
     Route: 055
     Dates: start: 20130808, end: 20130810
  44. MAGNESIUM SULPHATE [Concomitant]
     Route: 042
     Dates: start: 20130808, end: 20130808
  45. PROTONIX (PANTOPRAZOLE SODIUM) [Concomitant]
     Route: 048
     Dates: start: 20130807, end: 20130810
  46. PROTONIX (PANTOPRAZOLE SODIUM) [Concomitant]
     Route: 048
     Dates: start: 20131004, end: 20131004
  47. VANCOCIN [Concomitant]
     Route: 042
     Dates: start: 20130807, end: 20130808
  48. LEVAQUIN [Concomitant]
     Route: 048
     Dates: start: 20130823, end: 20130903
  49. TESSALON [Concomitant]
     Route: 048
     Dates: start: 20130823, end: 20130903
  50. CIPRO [Concomitant]
     Route: 048
     Dates: start: 20131008
  51. PLACEBO [Suspect]
     Indication: HER-2 POSITIVE BREAST CANCER
     Dosage: LOADING DOSE CYCLE 1.
     Route: 042
     Dates: start: 20130329, end: 20130329
  52. PLACEBO [Suspect]
     Dosage: MAINTENANCE DOSE?LAST DOSE PRIOR TO SAE: 03/OCT/2013
     Route: 042

REACTIONS (1)
  - Chest pain [Recovered/Resolved]
